FAERS Safety Report 18996563 (Version 1)
Quarter: 2021Q1

REPORT INFORMATION
  Report Type: Report from Study
  Country: US (occurrence: US)
  Receive Date: 20210311
  Receipt Date: 20210311
  Transmission Date: 20210420
  Serious: Yes (Hospitalization)
  Sender: FDA-Public Use
  Company Number: NVSC2021US050547

PATIENT
  Age: 5 Year
  Sex: Male
  Weight: 18.5 kg

DRUGS (1)
  1. ILARIS [Suspect]
     Active Substance: CANAKINUMAB
     Indication: STILL^S DISEASE
     Dosage: 64.5 MG, Q4W
     Route: 058
     Dates: start: 20170410, end: 20210210

REACTIONS (3)
  - Lung disorder [Recovering/Resolving]
  - White blood cell count increased [Recovering/Resolving]
  - Abdominal pain [Recovering/Resolving]

NARRATIVE: CASE EVENT DATE: 20210212
